FAERS Safety Report 6072587-7 (Version None)
Quarter: 2009Q1

REPORT INFORMATION
  Report Type: 
  Country: None (occurrence: None)
  Receive Date: 20090210
  Receipt Date: 20090205
  Transmission Date: 20090719
  Serious: Yes (Other)
  Sender: FDA-Public Use
  Company Number: US-BAXTER-2009BH000716

PATIENT
  Age: 74 Year
  Sex: Male

DRUGS (4)
  1. DIANEAL [Suspect]
     Indication: PERITONEAL DIALYSIS
     Route: 033
     Dates: start: 20081201, end: 20090112
  2. DIANEAL [Suspect]
     Route: 033
     Dates: end: 20081101
  3. DIANEAL [Suspect]
     Indication: PERITONEAL DIALYSIS
     Route: 033
     Dates: start: 20081201, end: 20090112
  4. DIANEAL [Suspect]
     Route: 033
     Dates: end: 20081101

REACTIONS (1)
  - SCROTAL DISORDER [None]
